FAERS Safety Report 8794595 (Version 1)
Quarter: 2012Q4

REPORT INFORMATION
  Report Type: 
  Country: US (occurrence: US)
  Receive Date: 20120917
  Receipt Date: 20120917
  Transmission Date: 20130627
  Serious: No
  Sender: FDA-Public Use
  Company Number: US-ASTRAZENECA-2012SE65390

PATIENT
  Age: 63 Year

DRUGS (1)
  1. ATENOLOL [Suspect]
     Route: 048

REACTIONS (3)
  - Adverse event [Unknown]
  - Heart rate increased [Unknown]
  - Dizziness [Unknown]
